FAERS Safety Report 4772176-8 (Version None)
Quarter: 2005Q3

REPORT INFORMATION
  Report Type: 
  Country: None (occurrence: None)
  Receive Date: 20050919
  Receipt Date: 20041006
  Transmission Date: 20060218
  Serious: No
  Sender: FDA-Public Use
  Company Number: US-BRISTOL-MYERS SQUIBB COMPANY-12723532

PATIENT
  Age: 72 Year
  Sex: Male

DRUGS (1)
  1. DEFINITY [Suspect]
     Dosage: DILUTED DOSE WAS INJECTED AT 1 MINUTE/CC
     Route: 051
     Dates: start: 20041006

REACTIONS (1)
  - BACK PAIN [None]
